FAERS Safety Report 8349517-8 (Version None)
Quarter: 2012Q2

REPORT INFORMATION
  Report Type: 
  Country: None (occurrence: None)
  Receive Date: 20120510
  Receipt Date: 20120504
  Transmission Date: 20120825
  Serious: Yes (Hospitalization)
  Sender: FDA-Public Use
  Company Number: CA-AMGEN-CANSP2012028284

PATIENT
  Age: 52 Year
  Sex: Female

DRUGS (1)
  1. XGEVA [Suspect]
     Indication: METASTASES TO BREAST
     Dosage: UNK UNK, QMO
     Route: 058
     Dates: start: 20120201

REACTIONS (6)
  - HIP ARTHROPLASTY [None]
  - INFLAMMATION [None]
  - INCISION SITE INFECTION [None]
  - HIP FRACTURE [None]
  - ERYTHEMA [None]
  - OEDEMA PERIPHERAL [None]
